FAERS Safety Report 5004282-7 (Version None)
Quarter: 2006Q2

REPORT INFORMATION
  Report Type: 
  Country: None (occurrence: None)
  Receive Date: 20060517
  Receipt Date: 20051122
  Transmission Date: 20061013
  Serious: Yes (Hospitalization, Disabling)
  Sender: FDA-Public Use
  Company Number: US-MERCK-0511USA04091

PATIENT
  Age: 64 Year
  Sex: Male
  Weight: 61 kg

DRUGS (1)
  1. VIOXX [Suspect]
     Indication: OSTEOARTHRITIS
     Route: 048
     Dates: start: 20010101, end: 20041001

REACTIONS (4)
  - ACUTE MYOCARDIAL INFARCTION [None]
  - CHRONIC OBSTRUCTIVE PULMONARY DISEASE [None]
  - CORONARY ARTERY OCCLUSION [None]
  - INTERVERTEBRAL DISC DEGENERATION [None]
